FAERS Safety Report 6073255-8 (Version None)
Quarter: 2009Q1

REPORT INFORMATION
  Report Type: 
  Country: None (occurrence: None)
  Receive Date: 20090211
  Receipt Date: 20090107
  Transmission Date: 20090719
  Serious: No
  Sender: FDA-Public Use
  Company Number: A0762540A

PATIENT
  Age: 78 Year
  Sex: Male

DRUGS (4)
  1. ALTABAX [Suspect]
     Indication: OPEN WOUND
     Dosage: 1APP TWICE PER DAY
     Route: 061
     Dates: start: 20090105
  2. LEVAQUIN [Concomitant]
  3. FUROSEMIDE [Concomitant]
  4. KLOR-CON [Concomitant]

REACTIONS (1)
  - APPLICATION SITE PAIN [None]
